FAERS Safety Report 4960998-X (Version None)
Quarter: 2006Q2

REPORT INFORMATION
  Report Type: 
  Country: None (occurrence: None)
  Receive Date: 20060403
  Receipt Date: 20060323
  Transmission Date: 20061013
  Serious: Yes (Death)
  Sender: FDA-Public Use
  Company Number: US-JNJFOC-20060306139

PATIENT
  Sex: Female

DRUGS (6)
  1. METHYLPHENIDATE HCL [Suspect]
     Indication: SLEEP DISORDER
     Route: 048
  2. CLOBAZAM [Concomitant]
  3. MODAFINIL [Concomitant]
  4. LORMETAZEPAM [Concomitant]
  5. MEPROBAMATE [Concomitant]
  6. ACEPROMETAZINE [Concomitant]

REACTIONS (1)
  - DEATH [None]
